FAERS Safety Report 14913475 (Version 1)
Quarter: 2018Q2

REPORT INFORMATION
  Report Type: Spontaneous
  Country: TR (occurrence: TR)
  Receive Date: 20180518
  Receipt Date: 20180518
  Transmission Date: 20180711
  Serious: Yes (Other)
  Sender: FDA-Public Use
  Company Number: TR-PFIZER INC-2018201946

PATIENT
  Age: 70 Year
  Sex: Male

DRUGS (2)
  1. AXITINIB [Suspect]
     Active Substance: AXITINIB
     Dosage: 5 MG, 2X/DAY
  2. AXITINIB [Suspect]
     Active Substance: AXITINIB
     Dosage: 7 MG, 2X/DAY

REACTIONS (8)
  - Diarrhoea [Unknown]
  - Dyspepsia [Unknown]
  - Pruritus [Unknown]
  - Decreased appetite [Unknown]
  - Pneumonia [Unknown]
  - Constipation [Unknown]
  - Fatigue [Unknown]
  - Cough [Unknown]
